FAERS Safety Report 20031765 (Version 2)
Quarter: 2021Q4

REPORT INFORMATION
  Report Type: Report from Study
  Country: US (occurrence: US)
  Receive Date: 20211103
  Receipt Date: 20211104
  Transmission Date: 20220303
  Serious: Yes (Other)
  Sender: FDA-Public Use
  Company Number: US-ABBVIE-21K-163-3876443-00

PATIENT
  Sex: Male

DRUGS (2)
  1. IMBRUVICA [Suspect]
     Active Substance: IBRUTINIB
     Indication: Chronic lymphocytic leukaemia
     Dosage: MISSED 4-6 DOSES
     Route: 048
     Dates: start: 2021, end: 202103
  2. IMBRUVICA [Suspect]
     Active Substance: IBRUTINIB
     Route: 048

REACTIONS (8)
  - Prostatic varices [Unknown]
  - Hypertension [Not Recovered/Not Resolved]
  - Bradyphrenia [Not Recovered/Not Resolved]
  - Blood pressure fluctuation [Unknown]
  - Haematuria [Not Recovered/Not Resolved]
  - Haematocrit decreased [Unknown]
  - Cytology abnormal [Unknown]
  - Infection [Unknown]

NARRATIVE: CASE EVENT DATE: 20210101
